FAERS Safety Report 14036376 (Version 1)
Quarter: 2017Q4

REPORT INFORMATION
  Report Type: Spontaneous
  Country: US (occurrence: US)
  Receive Date: 20171003
  Receipt Date: 20171003
  Transmission Date: 20180321
  Serious: No
  Sender: FDA-Public Use
  Company Number: US-ROCHE-1987110

PATIENT
  Sex: Female
  Weight: 59.02 kg

DRUGS (1)
  1. OCREVUS [Suspect]
     Active Substance: OCRELIZUMAB
     Indication: MULTIPLE SCLEROSIS
     Route: 042
     Dates: start: 20170528

REACTIONS (3)
  - Peroneal nerve palsy [Unknown]
  - Pain [Recovering/Resolving]
  - Gait disturbance [Recovering/Resolving]
